FAERS Safety Report 9807390 (Version 2)
Quarter: 2014Q2

REPORT INFORMATION
  Report Type: Spontaneous
  Country: DE (occurrence: DE)
  Receive Date: 20140110
  Receipt Date: 20140404
  Transmission Date: 20141212
  Serious: Yes (Other)
  Sender: FDA-Public Use
  Company Number: DE-AMGEN-DEUSP2014001175

PATIENT
  Age: 75 Year
  Sex: Female

DRUGS (3)
  1. ENBREL [Suspect]
     Indication: RHEUMATOID ARTHRITIS
     Dosage: 50 MG, WEEKLY
     Route: 065
     Dates: start: 20130708, end: 201310
  2. ENBREL [Suspect]
     Dosage: 50 MG, WEEKLY
     Route: 065
     Dates: start: 2013, end: 201312
  3. ENBREL [Suspect]
     Dosage: 50 MG, QWK
     Route: 065

REACTIONS (3)
  - Upper limb fracture [Unknown]
  - Pyrexia [Unknown]
  - Drug effect incomplete [Not Recovered/Not Resolved]
